FAERS Safety Report 6293863-9 (Version None)
Quarter: 2009Q3

REPORT INFORMATION
  Report Type: 
  Country: None (occurrence: None)
  Receive Date: 20090731
  Receipt Date: 20090731
  Transmission Date: 20100115
  Serious: Yes (Other)
  Sender: FDA-Public Use
  Company Number: None

PATIENT
  Sex: Female
  Weight: 63.5036 kg

DRUGS (1)
  1. LAMOTRIGINE [Suspect]
     Dosage: 150MG AM PO
     Route: 048
     Dates: start: 20090201, end: 20090421

REACTIONS (5)
  - BALANCE DISORDER [None]
  - DIZZINESS [None]
  - MOOD SWINGS [None]
  - NAUSEA [None]
  - PRODUCT SUBSTITUTION ISSUE [None]
